FAERS Safety Report 17464768 (Version 2)
Quarter: 2020Q3

REPORT INFORMATION
  Report Type: Spontaneous
  Country: US (occurrence: US)
  Receive Date: 20200226
  Receipt Date: 20200824
  Transmission Date: 20201102
  Serious: No
  Sender: FDA-Public Use
  Company Number: US-ROCHE-2479730

PATIENT
  Sex: Female

DRUGS (2)
  1. ALECENSA [Suspect]
     Active Substance: ALECTINIB HYDROCHLORIDE
     Indication: LUNG NEOPLASM MALIGNANT
     Dosage: ONGOING:YES
     Route: 048
     Dates: start: 20191004
  2. ALECENSA [Suspect]
     Active Substance: ALECTINIB HYDROCHLORIDE
     Route: 048

REACTIONS (7)
  - Abdominal distension [Unknown]
  - Fluid retention [Unknown]
  - Blood glucose increased [Unknown]
  - Diarrhoea [Unknown]
  - Headache [Unknown]
  - Nausea [Unknown]
  - Swelling [Unknown]
